FAERS Safety Report 4508292-5 (Version None)
Quarter: 2004Q4

REPORT INFORMATION
  Report Type: 
  Country: None (occurrence: None)
  Receive Date: 20041123
  Receipt Date: 20031219
  Transmission Date: 20050328
  Serious: No
  Sender: FDA-Public Use
  Company Number: US-GLAXOSMITHKLINE-A0443771A

PATIENT

DRUGS (1)
  1. WELLBUTRIN SR [Suspect]

REACTIONS (1)
  - EPISTAXIS [None]
